FAERS Safety Report 20230073 (Version 1)
Quarter: 2021Q4

REPORT INFORMATION
  Report Type: Spontaneous
  Country: US (occurrence: US)
  Receive Date: 20211226
  Receipt Date: 20211226
  Transmission Date: 20220303
  Serious: No
  Sender: FDA-Public Use
  Company Number: US-ORGANON-O2112USA001503

PATIENT
  Age: 78 Year
  Sex: Female

DRUGS (1)
  1. FOSAMAX [Suspect]
     Active Substance: ALENDRONATE SODIUM
     Indication: Osteoporosis
     Dosage: ONCE WEEKLY
     Route: 048

REACTIONS (4)
  - Product package associated injury [Recovered/Resolved]
  - Product packaging issue [Unknown]
  - Product packaging difficult to open [Unknown]
  - Product label issue [Unknown]
